FAERS Safety Report 7519662-5 (Version None)
Quarter: 2011Q2

REPORT INFORMATION
  Report Type: 
  Country: None (occurrence: None)
  Receive Date: 20110602
  Receipt Date: 20110518
  Transmission Date: 20111010
  Serious: Yes (Other)
  Sender: FDA-Public Use
  Company Number: B0722440A

PATIENT

DRUGS (1)
  1. ONDANSETRON [Suspect]
     Route: 042

REACTIONS (1)
  - PANCREATITIS [None]
